FAERS Safety Report 6743210-0 (Version None)
Quarter: 2010Q2

REPORT INFORMATION
  Report Type: 
  Country: None (occurrence: None)
  Receive Date: 20100527
  Receipt Date: 20100520
  Transmission Date: 20101027
  Serious: Yes (Other)
  Sender: FDA-Public Use
  Company Number: IT-WYE-H04714508

PATIENT
  Sex: Female
  Weight: 59 kg

DRUGS (1)
  1. GEMTUZUMAB OZOGAMICIN [Suspect]
     Indication: ACUTE MYELOID LEUKAEMIA
     Dosage: 3.42MG; FREQUENCY UNKNOWN; WITH A CUMULATIVE DOSE GIVEN 27.5 MG
     Route: 065
     Dates: start: 20070929, end: 20080414

REACTIONS (1)
  - VASCULITIS [None]
